FAERS Safety Report 6644997-8 (Version None)
Quarter: 2010Q1

REPORT INFORMATION
  Report Type: 
  Country: None (occurrence: None)
  Receive Date: 20100322
  Receipt Date: 20100310
  Transmission Date: 20100710
  Serious: Yes (Disabling, Other)
  Sender: FDA-Public Use
  Company Number: PHHY2010GB07938

PATIENT
  Sex: Male

DRUGS (10)
  1. CLOZARIL [Suspect]
     Indication: SCHIZOPHRENIA
     Dosage: 300 MG, UNK
     Route: 048
     Dates: start: 20090518
  2. CELEBREX [Concomitant]
     Indication: ANKYLOSING SPONDYLITIS
     Dosage: 200 MG, BID
     Route: 048
  3. METHOTREXATE [Concomitant]
     Indication: ANKYLOSING SPONDYLITIS
     Dosage: 17.5 MG WEEKLY
     Route: 048
  4. TRAMADOL [Concomitant]
     Dosage: 50 MG, BD
     Route: 048
  5. OMEPRAZOLE MAGNESIUM [Concomitant]
     Dosage: 20 MG
     Route: 048
  6. MULTI-VITAMINS [Concomitant]
  7. FOLIC ACID [Concomitant]
  8. GLUCOSAMINE [Concomitant]
  9. FISH OIL [Concomitant]
  10. GARLIC [Concomitant]

REACTIONS (2)
  - BLOOD ALKALINE PHOSPHATASE INCREASED [None]
  - C-REACTIVE PROTEIN INCREASED [None]
